FAERS Safety Report 20082937 (Version 4)
Quarter: 2022Q1

REPORT INFORMATION
  Report Type: Spontaneous
  Country: US (occurrence: US)
  Receive Date: 20211117
  Receipt Date: 20220307
  Transmission Date: 20220423
  Serious: Yes (Life-Threatening, Hospitalization)
  Sender: FDA-Public Use
  Company Number: US-ALKERMES INC.-ALK-2021-005906

PATIENT
  Sex: Male

DRUGS (2)
  1. LYBALVI [Suspect]
     Active Substance: OLANZAPINE\SAMIDORPHAN L-MALATE
     Indication: Product used for unknown indication
     Dosage: UNK MILLIGRAM
     Route: 048
  2. SUBOXONE [Suspect]
     Active Substance: BUPRENORPHINE HYDROCHLORIDE\NALOXONE HYDROCHLORIDE
     Indication: Drug use disorder
     Dosage: UNK
     Route: 065

REACTIONS (2)
  - Drug withdrawal syndrome [Not Recovered/Not Resolved]
  - Contraindicated product administered [Not Recovered/Not Resolved]
